FAERS Safety Report 5024844-0 (Version None)
Quarter: 2006Q2

REPORT INFORMATION
  Report Type: 
  Country: None (occurrence: None)
  Receive Date: 20060607
  Receipt Date: 20060530
  Transmission Date: 20061013
  Serious: Yes (Death, Hospitalization)
  Sender: FDA-Public Use
  Company Number: TCI2006A00788

PATIENT
  Age: 73 Year
  Sex: Male

DRUGS (5)
  1. LEUPROLIDE ACETATE [Suspect]
     Indication: PROSTATE CANCER
     Dosage: 3.75 MG (3.75 MG, 1 IN 28 D) SUBCUTANEOUS
     Route: 058
     Dates: start: 20051031, end: 20060123
  2. CASODEX [Suspect]
     Indication: PROSTATE CANCER
     Dosage: 80 MG (80 MG, 1 IN 1 D) PER ORAL
     Route: 048
     Dates: start: 20051011, end: 20060123
  3. DIGOXIN [Concomitant]
  4. CONIEL (BENIDIPINE HYDROCHLORIDE) [Concomitant]
  5. LUPRAC (TORASEMIDE) [Concomitant]

REACTIONS (11)
  - BLOOD DISORDER [None]
  - BLOOD TESTOSTERONE DECREASED [None]
  - BONE MARROW FAILURE [None]
  - BRONCHOPULMONARY ASPERGILLOSIS [None]
  - DIZZINESS [None]
  - FEBRILE NEUTROPENIA [None]
  - MALAISE [None]
  - MYELODYSPLASTIC SYNDROME [None]
  - NEUTROPHILIA [None]
  - PNEUMONIA [None]
  - THERAPEUTIC PRODUCT INEFFECTIVE [None]
